FAERS Safety Report 11540978 (Version 1)
Quarter: 2015Q3

REPORT INFORMATION
  Report Type: Spontaneous
  Country: US (occurrence: US)
  Receive Date: 20150923
  Receipt Date: 20150923
  Transmission Date: 20151125
  Serious: No
  Sender: FDA-Public Use
  Company Number: US-PERRIGO-15US003344

PATIENT
  Age: 60 Year
  Sex: Female
  Weight: 68.27 kg

DRUGS (2)
  1. NEOMYCIN-POLYMYIN B-DEXAMETHASONE OPHTHALMIC 1R2 [Suspect]
     Active Substance: DEXAMETHASONE\NEOMYCIN\POLYMYXIN B SULFATE
     Indication: HORDEOLUM
     Dosage: 1 THIN LAYER, BID
     Route: 047
     Dates: start: 20150317, end: 20150323
  2. OMEPRAZOLE. [Concomitant]
     Active Substance: OMEPRAZOLE
     Indication: GASTROOESOPHAGEAL REFLUX DISEASE
     Dosage: UNK
     Route: 065
     Dates: start: 2011

REACTIONS (2)
  - Drug ineffective [Unknown]
  - Inappropriate schedule of drug administration [Recovered/Resolved]

NARRATIVE: CASE EVENT DATE: 20150317
